FAERS Safety Report 6593560-6 (Version None)
Quarter: 2010Q1

REPORT INFORMATION
  Report Type: 
  Country: None (occurrence: None)
  Receive Date: 20100222
  Receipt Date: 20090723
  Transmission Date: 20100710
  Serious: No
  Sender: FDA-Public Use
  Company Number: US-BRISTOL-MYERS SQUIBB COMPANY-14713648

PATIENT
  Age: 48 Year
  Sex: Female
  Weight: 70 kg

DRUGS (6)
  1. ORENCIA [Suspect]
     Indication: RHEUMATOID ARTHRITIS
     Dosage: 1ST DOSE;
     Dates: start: 20090721
  2. METHOTREXATE [Concomitant]
  3. PERCOCET [Concomitant]
  4. DIAZEPAM [Concomitant]
  5. GABAPENTIN [Concomitant]
  6. MULTI-VITAMINS [Concomitant]

REACTIONS (3)
  - DIZZINESS [None]
  - HYPOTENSION [None]
  - OEDEMA PERIPHERAL [None]
